FAERS Safety Report 13885771 (Version 2)
Quarter: 2018Q4

REPORT INFORMATION
  Report Type: Report from Study
  Country: JP (occurrence: JP)
  Receive Date: 20170821
  Receipt Date: 20181112
  Transmission Date: 20190204
  Serious: Yes (Other)
  Sender: FDA-Public Use
  Company Number: JP-ASTELLAS-2017US032767

PATIENT

DRUGS (2)
  1. AMRUBICIN [Suspect]
     Active Substance: AMRUBICIN
     Indication: NON-SMALL CELL LUNG CANCER
     Route: 042
  2. ERLOTINIB [Suspect]
     Active Substance: ERLOTINIB
     Indication: NON-SMALL CELL LUNG CANCER
     Route: 048

REACTIONS (7)
  - Anaemia [Unknown]
  - Stomatitis [Unknown]
  - Rash [Unknown]
  - Neutropenia [Unknown]
  - Febrile neutropenia [Unknown]
  - Decreased appetite [Unknown]
  - Leukopenia [Unknown]
